FAERS Safety Report 8970050 (Version 1)
Quarter: 2012Q4

REPORT INFORMATION
  Report Type: 
  Country: US (occurrence: US)
  Receive Date: 20121218
  Receipt Date: 20121218
  Transmission Date: 20130627
  Serious: No
  Sender: FDA-Public Use
  Company Number: US-BRISTOL-MYERS SQUIBB COMPANY-16210262

PATIENT
  Age: 66 Year
  Sex: Female
  Weight: 83 kg

DRUGS (11)
  1. ABILIFY [Suspect]
  2. OXYCODONE HCL [Suspect]
  3. SYNTHROID [Concomitant]
  4. AMBIEN [Concomitant]
     Indication: SLEEP DISORDER
  5. TYLENOL [Concomitant]
  6. NEXIUM [Concomitant]
     Indication: GASTROOESOPHAGEAL REFLUX DISEASE
  7. LIPITOR [Concomitant]
     Indication: HAEMORRHAGE
     Dosage: takeshalf pill 5mg
  8. SENOKOT [Concomitant]
     Indication: CONSTIPATION
  9. COLACE [Concomitant]
     Indication: CONSTIPATION
  10. VITAMIN D [Concomitant]
     Dosage: 1DF:1000 uns.
  11. HYDROCORTISONE [Concomitant]
     Indication: SKIN DISORDER
     Dosage: Formulation cream. 2.5%

REACTIONS (6)
  - Rash pruritic [Not Recovered/Not Resolved]
  - Hunger [Unknown]
  - Thirst [Unknown]
  - Weight increased [Unknown]
  - Confusional state [Unknown]
  - Fatigue [Unknown]
